FAERS Safety Report 22909365 (Version 2)
Quarter: 2023Q4

REPORT INFORMATION
  Report Type: Report from Study
  Country: US (occurrence: US)
  Receive Date: 20230906
  Receipt Date: 20231205
  Transmission Date: 20240110
  Serious: Yes (Hospitalization)
  Sender: FDA-Public Use
  Company Number: US-TAKEDA-2023TUS084399

PATIENT
  Sex: Female

DRUGS (3)
  1. MARIBAVIR [Suspect]
     Active Substance: MARIBAVIR
     Indication: Cytomegalovirus infection
     Dosage: 400 MILLIGRAM, BID
     Route: 048
  2. MARIBAVIR [Suspect]
     Active Substance: MARIBAVIR
     Indication: Lung transplant
     Dosage: 400 MILLIGRAM, BID
     Route: 048
     Dates: start: 20230829
  3. MARIBAVIR [Suspect]
     Active Substance: MARIBAVIR
     Indication: Post procedural infection

REACTIONS (6)
  - Hospitalisation [Unknown]
  - Gastrointestinal disorder [Unknown]
  - Fatigue [Unknown]
  - Taste disorder [Unknown]
  - Nausea [Unknown]
  - Diarrhoea [Unknown]
